FAERS Safety Report 7819024-7 (Version None)
Quarter: 2011Q4

REPORT INFORMATION
  Report Type: 
  Country: None (occurrence: None)
  Receive Date: 20111012
  Receipt Date: 20110930
  Transmission Date: 20120403
  Serious: Yes (Other)
  Sender: FDA-Public Use
  Company Number: AUR-APL-2010-01043

PATIENT
  Age: 55 Year
  Sex: Female

DRUGS (24)
  1. VALSARTAN [Suspect]
     Indication: HYPERTENSION
     Dosage: 160 MG , 1 D, ORAL
     Route: 048
     Dates: start: 20020101
  2. BUPROPION HCL [Suspect]
     Indication: DEPRESSION
     Dosage: 300 MG, 1  D, ORAL
     Route: 048
  3. VENTOLIN [Suspect]
     Indication: ASTHMA
     Dosage: 90 MCG, 2 HR
  4. GABAPENTIN [Suspect]
     Indication: FIBROMYALGIA
     Dosage: 6 DOSAGE FORMS (2 DOSAGE FORMS, 3 IN 1 D), ORAL
     Route: 048
     Dates: start: 20040101
  5. GABAPENTIN [Suspect]
     Indication: DIABETIC NEUROPATHY
     Dosage: 6 DOSAGE FORMS (2 DOSAGE FORMS, 3 IN 1 D), ORAL
     Route: 048
     Dates: start: 20040101
  6. VICODIN [Suspect]
     Indication: ARTHRALGIA
     Dosage: 4 HR, ORAL
     Route: 048
     Dates: start: 20060101
  7. METFORMIN HYDRODCHLORIDE/SITAGLIPTIN (METFORMIN AND SITAGLIPTIN) [Suspect]
     Indication: DIABETES MELLITUS
     Dosage: 1 D, ORAL
     Route: 048
  8. KLONOPIN [Suspect]
     Indication: ANXIETY
     Dosage: 1 MG (0.5 MG, 2 IN 1 D),ORAL
     Route: 048
  9. KLONOPIN [Suspect]
     Indication: PANIC ATTACK
     Dosage: 1 MG (0.5 MG, 2 IN 1 D),ORAL
     Route: 048
  10. PRILOSEC [Suspect]
     Indication: GASTROOESOPHAGEAL REFLUX DISEASE
     Dosage: 40 MG (20 MG, 2 IN  D, ORAL
     Route: 048
  11. EPIPEN [Suspect]
     Indication: HYPERSENSITIVITY
     Dosage: TRANSDERMAL
     Route: 062
  12. IMIPREX (IMIPRAMINOXIDE HYDROCHLORIDE) [Suspect]
     Indication: MIGRAINE
     Dosage: 100 MG, AS REQUIRED, ORAL
     Route: 048
  13. NITROGLYCERIN [Suspect]
     Indication: CHEST PAIN
     Dosage: 0.4 MG, AS REQUIRED, OTHER
     Route: 050
  14. FLOVENT [Suspect]
     Indication: ASTHMA
     Dosage: 220 MCG (110 MCG, 2 IN 1 D)
  15. SIMVASTATIN [Suspect]
     Indication: PRODUCT USED FOR UNKNOWN INDICATION
     Dosage: ORAL
     Route: 048
  16. ZYRTEC [Suspect]
     Indication: HYPERSENSITIVITY
     Dosage: 10 MG (10 MG, 1 IN 1 D),ORAL
     Route: 048
     Dates: start: 20090101
  17. LOZOL [Suspect]
     Indication: FLUID RETENTION
     Dosage: 1.25 MG, 1 D, ORAL
     Route: 048
     Dates: start: 20020101
  18. CARAFATE [Suspect]
     Indication: GASTROOESOPHAGEAL REFLUX DISEASE
     Dosage: 2 GM (1 GM, 2 IN 1 D),ORAL
     Route: 048
  19. FLONASE [Suspect]
     Indication: HYPERSENSITIVITY
     Dosage: 500 MCG, 1 D), NASAL
     Route: 045
  20. MULTIVITAMIN [Suspect]
     Indication: PRODUCT USED FOR UNKNOWN INDICATION
     Dosage: ORAL
     Route: 048
  21. ZANAFLEX [Suspect]
     Indication: MUSCLE SPASMS
     Dosage: 4 MG (2 MG, 2 IN 1 D), ORAL
     Route: 048
     Dates: start: 20090101
  22. LORTAB [Suspect]
     Indication: PRODUCT USED FOR UNKNOWN INDICATION
     Dosage: ORAL
     Route: 048
  23. METOFRMIN (METFORMIN) [Suspect]
     Indication: DIABETES MELLITUS
     Dosage: 500 MG, 1 IN D, ORAL
     Route: 048
  24. AGGRENOX [Suspect]
     Indication: PRODUCT USED FOR UNKNOWN INDICATION
     Dosage: 2 IN 1 D, ORAL
     Route: 048
     Dates: start: 20091201

REACTIONS (2)
  - MEMORY IMPAIRMENT [None]
  - CARDIAC DISORDER [None]
